FAERS Safety Report 7890986-5 (Version None)
Quarter: 2011Q4

REPORT INFORMATION
  Report Type: 
  Country: None (occurrence: None)
  Receive Date: 20111103
  Receipt Date: 20110727
  Transmission Date: 20120403
  Serious: No
  Sender: FDA-Public Use
  Company Number: US-AMGEN-USASP2011038131

PATIENT
  Age: 42 Year
  Sex: Male
  Weight: 109.75 kg

DRUGS (9)
  1. CALCIUM [Concomitant]
     Route: 048
  2. BYETTA [Concomitant]
     Route: 058
  3. VITAMIN D [Concomitant]
     Dosage: 400 IU, UNK
     Route: 048
  4. MULTI-VITAMIN [Concomitant]
     Route: 048
  5. METFORMIN HCL [Concomitant]
     Dosage: 500 MG, UNK
     Route: 048
  6. LISINOPRIL [Concomitant]
     Dosage: 10 MG, UNK
     Route: 048
  7. COD LIVER [Concomitant]
     Route: 048
  8. ENBREL [Suspect]
     Dosage: 50 MG, QWK
     Route: 058
  9. SELENIUM [Concomitant]
     Dosage: UNK
     Route: 048

REACTIONS (2)
  - URINARY TRACT INFECTION [None]
  - PROSTATITIS [None]
